FAERS Safety Report 20165611 (Version 1)
Quarter: 2021Q4

REPORT INFORMATION
  Report Type: Spontaneous
  Country: CN (occurrence: None)
  Receive Date: 20211209
  Receipt Date: 20211209
  Transmission Date: 20220303
  Serious: Yes (Other)
  Sender: FDA-Public Use
  Company Number: 2021A852695

PATIENT
  Age: 55 Year
  Sex: Male
  Weight: 70 kg

DRUGS (4)
  1. IMFINZI [Suspect]
     Active Substance: DURVALUMAB
     Indication: Non-small cell lung cancer stage III
     Dosage: 1000MG/CYCLE
     Route: 042
     Dates: start: 20210303, end: 20210406
  2. IMFINZI [Suspect]
     Active Substance: DURVALUMAB
     Indication: Non-small cell lung cancer stage III
     Dosage: 1000MG/CYCLE
     Route: 042
     Dates: end: 202106
  3. IMFINZI [Suspect]
     Active Substance: DURVALUMAB
     Indication: Non-small cell lung cancer stage III
     Dosage: 1000MG/CYCLE
     Route: 042
     Dates: start: 202109
  4. IMFINZI [Suspect]
     Active Substance: DURVALUMAB
     Indication: Non-small cell lung cancer stage III
     Dosage: INTERMITTENTLY FOR HALF A YEAR TO ONE YEAR, THE DRUG WAS NOT USED IN JUNE, AND WAS POSTPONED TO J...
     Route: 042
     Dates: start: 202109

REACTIONS (1)
  - White blood cell count decreased [Recovering/Resolving]
